FAERS Safety Report 24739058 (Version 1)
Quarter: 2024Q4

REPORT INFORMATION
  Report Type: Spontaneous
  Country: US (occurrence: US)
  Receive Date: 20241216
  Receipt Date: 20241216
  Transmission Date: 20250114
  Serious: No
  Sender: PURDUE
  Company Number: US-PURDUE-USA-2024-0314009

PATIENT
  Sex: Female

DRUGS (6)
  1. DRONABINOL [Suspect]
     Active Substance: DRONABINOL
     Indication: Headache
     Dosage: UNK
     Route: 048
  2. DRONABINOL [Suspect]
     Active Substance: DRONABINOL
     Indication: Loss of consciousness
  3. DRONABINOL [Suspect]
     Active Substance: DRONABINOL
     Indication: Photosensitivity reaction
  4. CANNABIDIOL [Suspect]
     Active Substance: CANNABIDIOL
     Indication: Headache
     Dosage: UNK
     Route: 065
  5. CANNABIDIOL [Suspect]
     Active Substance: CANNABIDIOL
     Indication: Photosensitivity reaction
  6. CANNABIDIOL [Suspect]
     Active Substance: CANNABIDIOL
     Indication: Loss of consciousness

REACTIONS (1)
  - Drug effective for unapproved indication [Unknown]
